FAERS Safety Report 8451524-1 (Version None)
Quarter: 2012Q2

REPORT INFORMATION
  Report Type: 
  Country: None (occurrence: None)
  Receive Date: 20120620
  Receipt Date: 20120306
  Transmission Date: 20120825
  Serious: No
  Sender: FDA-Public Use
  Company Number: US-VERTEX PHARMACEUTICALS INC.-AE-2012-003229

PATIENT
  Sex: Female
  Weight: 62.198 kg

DRUGS (6)
  1. PEGASYS [Concomitant]
     Indication: HEPATITIS C
     Route: 058
     Dates: start: 20120228
  2. HYDRALAZINE HYDROCHLORIDE [Concomitant]
  3. INCIVEK [Suspect]
     Indication: HEPATITIS C
     Route: 048
     Dates: start: 20120228
  4. RIBAVIRIN [Concomitant]
     Indication: HEPATITIS C
     Dates: start: 20120228
  5. ATENOLOL [Concomitant]
  6. CLONIDINE [Concomitant]

REACTIONS (7)
  - CHILLS [None]
  - HEADACHE [None]
  - PAIN [None]
  - NAUSEA [None]
  - ASTHENIA [None]
  - HYPOTENSION [None]
  - VOMITING [None]
